FAERS Safety Report 25635508 (Version 1)
Quarter: 2025Q3

REPORT INFORMATION
  Report Type: Spontaneous
  Country: US (occurrence: US)
  Receive Date: 20250802
  Receipt Date: 20250802
  Transmission Date: 20251020
  Serious: Yes (Hospitalization, Other)
  Sender: ALEXION PHARMACEUTICALS
  Company Number: US-AstraZeneca-CH-00921854AP

PATIENT
  Sex: Female

DRUGS (1)
  1. BREZTRI [Suspect]
     Active Substance: BUDESONIDE\FORMOTEROL\GLYCOPYRROLATE
     Route: 065

REACTIONS (13)
  - Malaise [Unknown]
  - Cognitive disorder [Unknown]
  - Device delivery system issue [Unknown]
  - Product prescribing issue [Unknown]
  - Eye disorder [Unknown]
  - Incorrect dose administered [Unknown]
  - Fatigue [Unknown]
  - Device issue [Unknown]
  - Wrong technique in device usage process [Unknown]
  - Muscular weakness [Unknown]
  - Product dose omission issue [Unknown]
  - Abdominal discomfort [Unknown]
  - Cardiovascular disorder [Unknown]
